FAERS Safety Report 9646447 (Version 2)
Quarter: 2013Q4

REPORT INFORMATION
  Report Type: Spontaneous
  Country: IT (occurrence: IT)
  Receive Date: 20131025
  Receipt Date: 20131025
  Transmission Date: 20140711
  Serious: Yes (Hospitalization)
  Sender: FDA-Public Use
  Company Number: IT-ACTAVIS-2012-23590

PATIENT
  Age: 7 Year
  Sex: Male

DRUGS (1)
  1. IBUPROFEN (UNKNOWN) [Suspect]
     Indication: PYREXIA
     Dosage: 1020 MG, DAILY
     Route: 048
     Dates: start: 20120925, end: 20120928

REACTIONS (2)
  - Gastric ulcer [Recovering/Resolving]
  - Gastritis erosive [Recovering/Resolving]
